FAERS Safety Report 24343439 (Version 2)
Quarter: 2024Q4

REPORT INFORMATION
  Report Type: Spontaneous
  Country: FR (occurrence: FR)
  Receive Date: 20240920
  Receipt Date: 20241106
  Transmission Date: 20250114
  Serious: Yes (Death, Hospitalization, Disabling, Other)
  Sender: BRISTOL-MYERS SQUIBB COMPANY
  Company Number: None

PATIENT
  Age: 63 Year
  Sex: Male
  Weight: 55 kg

DRUGS (2)
  1. KRAZATI [Suspect]
     Active Substance: ADAGRASIB
     Indication: Lung adenocarcinoma
     Dosage: 600 MG MORNING AND EVENING
     Route: 048
     Dates: start: 20240418, end: 202407
  2. KRAZATI [Suspect]
     Active Substance: ADAGRASIB
     Route: 048
     Dates: start: 202407, end: 20240827

REACTIONS (13)
  - Deafness bilateral [Not Recovered/Not Resolved]
  - Metastases to meninges [Fatal]
  - Spinal osteoarthritis [Unknown]
  - Intervertebral disc disorder [Unknown]
  - Staphylococcus test positive [Unknown]
  - Gram stain positive [Unknown]
  - Dyspepsia [Unknown]
  - Fatigue [Unknown]
  - Tinnitus [Unknown]
  - Spinal pain [Unknown]
  - Facial paralysis [Unknown]
  - Lower respiratory tract congestion [Unknown]
  - Prescribed underdose [Unknown]

NARRATIVE: CASE EVENT DATE: 20240715
